FAERS Safety Report 23736573 (Version 2)
Quarter: 2024Q4

REPORT INFORMATION
  Report Type: Spontaneous
  Country: FR (occurrence: FR)
  Receive Date: 20240412
  Receipt Date: 20241204
  Transmission Date: 20250115
  Serious: Yes (Hospitalization, Other)
  Sender: MYLAN
  Company Number: None

PATIENT
  Age: 23 Year
  Sex: Male

DRUGS (7)
  1. ZOLPIDEM [Suspect]
     Active Substance: ZOLPIDEM TARTRATE
     Indication: Product used for unknown indication
     Dosage: QD (3 TO 20 TABLETS/DAY)
     Route: 048
     Dates: start: 202301
  2. TRAMADOL [Suspect]
     Active Substance: TRAMADOL
     Indication: Product used for unknown indication
     Dosage: 12 DOSAGE FORM, QD (12 TABS OF 50 MG IN THE EVENING)
     Route: 048
     Dates: start: 202011
  3. TRAMADOL [Suspect]
     Active Substance: TRAMADOL
     Dosage: 30 DOSAGE FORM (30 TABLETS OF 50 MG THROUGHOUT THE DAY)
     Route: 048
     Dates: start: 202011
  4. ALPRAZOLAM [Suspect]
     Active Substance: ALPRAZOLAM
     Indication: Product used for unknown indication
     Dosage: 30 DOSAGE FORM, QD (30 TABLETS/DAY IN THE EVENING)
     Route: 048
     Dates: start: 202406
  5. MORPHINE [Suspect]
     Active Substance: MORPHINE
     Indication: Product used for unknown indication
     Dosage: QD (40 TO 50 MG IN THE EVENING)
     Route: 042
     Dates: start: 2018
  6. MORPHINE [Suspect]
     Active Substance: MORPHINE
     Dosage: QD (40 TO 50 MG IN THE EVENING)
     Route: 030
     Dates: start: 2018
  7. KETAMINE [Suspect]
     Active Substance: KETAMINE
     Indication: Product used for unknown indication
     Dosage: 300 MILLIGRAM (300 MG 1 TO 3 TIMES/DAY)
     Route: 030
     Dates: start: 202401

REACTIONS (3)
  - Drug use disorder [Not Recovered/Not Resolved]
  - Seizure [Recovered/Resolved]
  - Product use in unapproved indication [Not Recovered/Not Resolved]

NARRATIVE: CASE EVENT DATE: 20241120
